FAERS Safety Report 10186460 (Version 1)
Quarter: 2014Q2

REPORT INFORMATION
  Report Type: Spontaneous
  Country: US (occurrence: US)
  Receive Date: 20140521
  Receipt Date: 20140521
  Transmission Date: 20141212
  Serious: No
  Sender: FDA-Public Use
  Company Number: US-ASTRAZENECA-2013SE76513

PATIENT
  Age: 72 Year
  Sex: Female
  Weight: 68.9 kg

DRUGS (4)
  1. PULMICORT FLEXHALER [Suspect]
     Indication: BRONCHITIS
     Route: 055
  2. DIOVAN [Concomitant]
  3. PROPANOLOL [Concomitant]
  4. ZOCOR [Concomitant]
     Indication: BLOOD CHOLESTEROL

REACTIONS (2)
  - Blood pressure abnormal [Unknown]
  - Off label use [Unknown]
